FAERS Safety Report 14223667 (Version 2)
Quarter: 2018Q1

REPORT INFORMATION
  Report Type: Report from Study
  Country: US (occurrence: US)
  Receive Date: 20171124
  Receipt Date: 20180309
  Transmission Date: 20180508
  Serious: Yes (Hospitalization, Other)
  Sender: FDA-Public Use
  Company Number: US-TEVA-2017-US-826753

PATIENT
  Age: 62 Year

DRUGS (1)
  1. COPAXONE [Suspect]
     Active Substance: GLATIRAMER ACETATE
     Indication: MULTIPLE SCLEROSIS
     Route: 058

REACTIONS (4)
  - Pulmonary mass [Unknown]
  - Atelectasis [Unknown]
  - Meniscus injury [Unknown]
  - Pain [Unknown]

NARRATIVE: CASE EVENT DATE: 201708
